FAERS Safety Report 21824905 (Version 1)
Quarter: 2023Q1

REPORT INFORMATION
  Report Type: Spontaneous
  Country: US (occurrence: US)
  Receive Date: 20230105
  Receipt Date: 20230105
  Transmission Date: 20230418
  Serious: Yes (Death, Hospitalization)
  Sender: FDA-Public Use
  Company Number: US-La Jolla Pharmaceutical-2023TP000001

PATIENT
  Age: 73 Year
  Sex: Male

DRUGS (1)
  1. XERAVA [Suspect]
     Active Substance: ERAVACYCLINE DIHYDROCHLORIDE
     Indication: Mycobacterium abscessus infection
     Route: 042

REACTIONS (4)
  - Pneumonia pseudomonal [Fatal]
  - Septic shock [Fatal]
  - Blood fibrinogen decreased [Recovered/Resolved]
  - Off label use [Recovered/Resolved]
